FAERS Safety Report 16675023 (Version 3)
Quarter: 2020Q2

REPORT INFORMATION
  Report Type: Spontaneous
  Country: US (occurrence: US)
  Receive Date: 20190806
  Receipt Date: 20200505
  Transmission Date: 20200713
  Serious: No
  Sender: FDA-Public Use
  Company Number: US-SA-2019SA209227

PATIENT
  Sex: Female

DRUGS (14)
  1. PREDNISONE. [Concomitant]
     Active Substance: PREDNISONE
  2. NARATRIPTAN [Concomitant]
     Active Substance: NARATRIPTAN HYDROCHLORIDE
  3. DUPIXENT [Suspect]
     Active Substance: DUPILUMAB
     Indication: DERMATITIS ATOPIC
     Dosage: 300 MG, QOW
     Route: 058
     Dates: start: 2019
  4. ESCITALOPRAM OXALATE. [Concomitant]
     Active Substance: ESCITALOPRAM OXALATE
  5. CEPHALEXIN [CEFALEXIN] [Concomitant]
     Active Substance: CEPHALEXIN
  6. FLUTICASONE PROPIONATE. [Concomitant]
     Active Substance: FLUTICASONE PROPIONATE
  7. BEPREVE [Concomitant]
     Active Substance: BEPOTASTINE BESILATE
  8. PIMECROLIMUS. [Concomitant]
     Active Substance: PIMECROLIMUS
  9. METHYLPREDISOLONE [Concomitant]
     Active Substance: METHYLPREDNISOLONE
  10. VALACYCLOVIR [Concomitant]
     Active Substance: VALACYCLOVIR HYDROCHLORIDE
  11. NABUMETONE. [Concomitant]
     Active Substance: NABUMETONE
  12. METFORMIN HCL [Concomitant]
     Active Substance: METFORMIN HYDROCHLORIDE
  13. AIMOVIG [Concomitant]
     Active Substance: ERENUMAB-AOOE
  14. EPINASTINE. [Concomitant]
     Active Substance: EPINASTINE HYDROCHLORIDE

REACTIONS (3)
  - Skin swelling [Recovering/Resolving]
  - Rash [Unknown]
  - Conjunctivitis [Unknown]

NARRATIVE: CASE EVENT DATE: 2019
